FAERS Safety Report 8313026-2 (Version None)
Quarter: 2012Q2

REPORT INFORMATION
  Report Type: 
  Country: None (occurrence: None)
  Receive Date: 20120424
  Receipt Date: 20120411
  Transmission Date: 20120825
  Serious: Yes (Hospitalization, Other)
  Sender: FDA-Public Use
  Company Number: ADR-2012-00739

PATIENT
  Age: 48 Year
  Sex: Female

DRUGS (1)
  1. BACLOFEN [Suspect]

REACTIONS (4)
  - CONDITION AGGRAVATED [None]
  - PANCYTOPENIA [None]
  - RESPIRATORY DISORDER [None]
  - PNEUMONIA [None]
